FAERS Safety Report 5167695-9 (Version None)
Quarter: 2006Q4

REPORT INFORMATION
  Report Type: 
  Country: None (occurrence: None)
  Receive Date: 20061201
  Receipt Date: 20061201
  Transmission Date: 20070319
  Serious: Yes (Life-Threatening, Disabling)
  Sender: FDA-Public Use
  Company Number: None

PATIENT
  Age: 44 Year
  Sex: Male
  Weight: 97.977 kg

DRUGS (4)
  1. REMICADE [Suspect]
     Indication: RHEUMATOID ARTHRITIS
     Dosage: 300 MG  Q 7 WEEKS  IV DRIP   3 YEARS AGO TO PRESENT
     Route: 041
  2. DIOVAN [Concomitant]
  3. METHOTREXATE [Concomitant]
  4. ARAVA [Concomitant]

REACTIONS (4)
  - HEADACHE [None]
  - HYDROCEPHALUS [None]
  - NERVOUS SYSTEM DISORDER [None]
  - SHUNT INFECTION [None]
